FAERS Safety Report 10069815 (Version 1)
Quarter: 2014Q2

REPORT INFORMATION
  Report Type: Spontaneous
  Country: US (occurrence: US)
  Receive Date: 20140410
  Receipt Date: 20140410
  Transmission Date: 20141212
  Serious: No
  Sender: FDA-Public Use
  Company Number: US-PFIZER INC-2014097889

PATIENT
  Age: 64 Year
  Sex: Female

DRUGS (2)
  1. PREMPRO [Suspect]
     Dosage: UNK
  2. TETANUS VACCINE [Suspect]
     Indication: IMMUNISATION
     Dosage: 1 DF, SINGLE

REACTIONS (1)
  - Drug hypersensitivity [Unknown]
